FAERS Safety Report 8373994-X (Version None)
Quarter: 2012Q2

REPORT INFORMATION
  Report Type: 
  Country: None (occurrence: None)
  Receive Date: 20120521
  Receipt Date: 20120516
  Transmission Date: 20120825
  Serious: Yes (Life-Threatening, Hospitalization, Disabling)
  Sender: FDA-Public Use
  Company Number: US-EISAI INC-E7389-01141-CLI-US

PATIENT
  Sex: Female

DRUGS (25)
  1. CALCIUM [Concomitant]
     Indication: OSTEOPENIA
     Route: 048
     Dates: start: 20050101, end: 20110129
  2. TYLENOL [Concomitant]
     Indication: HEADACHE
     Route: 048
     Dates: start: 20100910, end: 20110129
  3. DEXAMETHASONE [Concomitant]
     Route: 048
     Dates: start: 20100812, end: 20110107
  4. OMEPRAZOLE [Concomitant]
     Route: 048
     Dates: start: 19890101, end: 20110129
  5. IBUPROFEN [Concomitant]
     Route: 048
     Dates: start: 20090903, end: 20110129
  6. FEXOFENADINE [Concomitant]
     Dosage: UNKOWN
     Route: 048
     Dates: start: 20070101, end: 20110129
  7. EPIRUBICIN HYDROCHLORIDE [Suspect]
     Indication: NON-SMALL CELL LUNG CANCER
     Route: 041
     Dates: start: 20100813, end: 20110106
  8. ATIVAN [Concomitant]
     Indication: ANXIETY
     Route: 048
     Dates: start: 20090811, end: 20110209
  9. DETROL LA [Concomitant]
     Indication: INCONTINENCE
     Route: 048
     Dates: start: 20010101, end: 20110129
  10. VITAMIN D [Concomitant]
     Indication: OSTEOPENIA
     Route: 048
     Dates: start: 20050101, end: 20110205
  11. METOPROLOL TARTRATE [Concomitant]
     Indication: HYPERTENSION
     Route: 048
     Dates: start: 20090724, end: 20110205
  12. SIMVASTATIN [Concomitant]
     Indication: HYPERCHOLESTEROLAEMIA
     Route: 048
     Dates: start: 20030101, end: 20110205
  13. ASCORBIC ACID [Concomitant]
     Route: 048
     Dates: start: 20050101, end: 20110129
  14. PEMETREXED [Suspect]
     Indication: NON-SMALL CELL LUNG CANCER
     Route: 041
     Dates: start: 20100813
  15. VICODIN [Concomitant]
     Indication: PAIN
     Route: 048
     Dates: start: 20090821, end: 20110129
  16. VITAMIN B6 [Concomitant]
     Route: 048
     Dates: start: 20100301, end: 20110129
  17. FISH OIL [Concomitant]
     Route: 048
     Dates: start: 20000101, end: 20110129
  18. ALPRAZOLAM [Concomitant]
     Indication: ANXIETY
     Route: 048
     Dates: start: 20100506, end: 20110129
  19. MULTI-VITAMINS [Concomitant]
     Route: 048
     Dates: start: 20000101, end: 20110205
  20. TESSALON [Concomitant]
     Indication: PAIN
  21. FOLIC ACID [Concomitant]
     Route: 048
     Dates: start: 20100805, end: 20110205
  22. ASPIRIN [Concomitant]
     Route: 048
     Dates: start: 19990101, end: 20110130
  23. TRIAMCINOLONE ACETONIDE [Concomitant]
     Indication: RASH
     Route: 061
     Dates: start: 20090801, end: 20110129
  24. ZOLOFT [Concomitant]
     Indication: DEPRESSION
     Route: 048
     Dates: start: 20100301, end: 20110205
  25. TESSALON [Concomitant]
     Route: 048
     Dates: start: 20110113, end: 20110119

REACTIONS (1)
  - PULMONARY EMBOLISM [None]
